FAERS Safety Report 9831813 (Version 2)
Quarter: 2014Q1

REPORT INFORMATION
  Report Type: Spontaneous
  Country: US (occurrence: US)
  Receive Date: 20140121
  Receipt Date: 20140210
  Transmission Date: 20141002
  Serious: Yes (Hospitalization)
  Sender: FDA-Public Use
  Company Number: US-BAYER-2014-005385

PATIENT
  Age: 24 Year
  Sex: Female

DRUGS (3)
  1. MIRENA [Suspect]
     Dosage: 20 MCG/24HR, CONT
     Route: 015
     Dates: start: 20101111, end: 20130207
  2. PERCOCET [Concomitant]
  3. IBUPROFEN [Concomitant]

REACTIONS (11)
  - Uterine perforation [None]
  - Genital haemorrhage [None]
  - Blood urine present [None]
  - Vaginal haemorrhage [None]
  - Device dislocation [None]
  - Emotional distress [None]
  - Medical device complication [None]
  - Pain [None]
  - Vulvovaginal pain [None]
  - Pelvic pain [None]
  - Device issue [None]
